FAERS Safety Report 8381111-5 (Version None)
Quarter: 2012Q2

REPORT INFORMATION
  Report Type: 
  Country: None (occurrence: None)
  Receive Date: 20120523
  Receipt Date: 20120522
  Transmission Date: 20120825
  Serious: Yes (Other)
  Sender: FDA-Public Use
  Company Number: US-PFIZER INC-2012059870

PATIENT
  Sex: Female
  Weight: 43.084 kg

DRUGS (3)
  1. CHANTIX [Suspect]
     Indication: SMOKING CESSATION THERAPY
     Dosage: 0.5 MG, 1X/DAY
     Route: 048
     Dates: start: 20120313, end: 20120413
  2. LEXAPRO [Concomitant]
     Indication: SURGERY
     Dosage: 20 MG, DAILY
  3. PERCOCET [Concomitant]
     Indication: SURGERY
     Dosage: 10 MG, AS NEEDED

REACTIONS (6)
  - STRESS [None]
  - CONFUSIONAL STATE [None]
  - DRUG PRESCRIBING ERROR [None]
  - HALLUCINATION [None]
  - MEMORY IMPAIRMENT [None]
  - DECREASED INTEREST [None]
